FAERS Safety Report 6552642-5 (Version None)
Quarter: 2010Q1

REPORT INFORMATION
  Report Type: 
  Country: None (occurrence: None)
  Receive Date: 20100126
  Receipt Date: 20100125
  Transmission Date: 20100710
  Serious: Yes (Hospitalization)
  Sender: FDA-Public Use
  Company Number: A0841262A

PATIENT
  Age: 62 Year
  Sex: Male
  Weight: 102.3 kg

DRUGS (2)
  1. AVANDIA [Suspect]
     Indication: DIABETES MELLITUS
     Dosage: 8MG TWICE PER DAY
     Route: 048
     Dates: start: 20030701, end: 20070401
  2. AVANDAMET [Suspect]
     Indication: DIABETES MELLITUS
     Route: 048

REACTIONS (5)
  - CEREBROVASCULAR ACCIDENT [None]
  - EATING DISORDER [None]
  - GAIT DISTURBANCE [None]
  - HEMIPLEGIA [None]
  - MUSCLE SPASMS [None]
